FAERS Safety Report 5892816-X (Version None)
Quarter: 2008Q3

REPORT INFORMATION
  Report Type: 
  Country: None (occurrence: None)
  Receive Date: 20080923
  Receipt Date: 20080916
  Transmission Date: 20090109
  Serious: No
  Sender: FDA-Public Use
  Company Number: US-BAYER-200818907NA

PATIENT

DRUGS (1)
  1. MIRENA [Suspect]
     Route: 015
     Dates: start: 20080212

REACTIONS (1)
  - NO ADVERSE EVENT [None]
